FAERS Safety Report 5669886-7 (Version None)
Quarter: 2008Q1

REPORT INFORMATION
  Report Type: 
  Country: None (occurrence: None)
  Receive Date: 20080317
  Receipt Date: 20080218
  Transmission Date: 20080703
  Serious: Yes (Hospitalization)
  Sender: FDA-Public Use
  Company Number: HK-BAXTER-2008BH001567

PATIENT
  Age: 9 Month
  Sex: Male

DRUGS (5)
  1. DEXTROSE 5% AND SODIUM CHLORIDE 0.2% IN PLASTIC CONTAINER [Suspect]
     Indication: FLUID REPLACEMENT
     Route: 042
     Dates: start: 20080214, end: 20080215
  2. PANADOL [Suspect]
     Indication: DRUG USE FOR UNKNOWN INDICATION
     Route: 065
  3. CLOXACILLIN SODIUM [Suspect]
     Route: 042
     Dates: start: 20080214, end: 20080214
  4. CLOXACILLIN SODIUM [Concomitant]
     Indication: ACUTE TONSILLITIS
     Route: 065
     Dates: start: 20080214, end: 20080214
  5. PONSTAN [Concomitant]
     Indication: PYREXIA
     Route: 048
     Dates: start: 20080214, end: 20080217

REACTIONS (2)
  - BLISTER [None]
  - OEDEMA PERIPHERAL [None]
